FAERS Safety Report 9132722 (Version 19)
Quarter: 2016Q3

REPORT INFORMATION
  Report Type: Report from Study
  Country: CA (occurrence: CA)
  Receive Date: 20130301
  Receipt Date: 20160701
  Transmission Date: 20161109
  Serious: Yes (Hospitalization, Other)
  Sender: FDA-Public Use
  Company Number: CA-ROCHE-761792

PATIENT
  Age: 68 Year
  Sex: Female
  Weight: 78 kg

DRUGS (20)
  1. METHYLPREDNISOLONE. [Concomitant]
     Active Substance: METHYLPREDNISOLONE
     Route: 042
     Dates: start: 20100615
  2. KOMBIGLYZE XR [Concomitant]
     Active Substance: METFORMIN HYDROCHLORIDE\SAXAGLIPTIN HYDROCHLORIDE
  3. RITUXAN [Suspect]
     Active Substance: RITUXIMAB
     Indication: RHEUMATOID ARTHRITIS
     Dosage: LAST INFUSION ON 16/DEC/2015; ON HOLD
     Route: 042
  4. MORPHINE [Concomitant]
     Active Substance: MORPHINE
     Indication: PAIN
     Dosage: DRUG NAME ^PMS MORPHINE^
     Route: 065
  5. ACETAMINOPHEN. [Concomitant]
     Active Substance: ACETAMINOPHEN
     Indication: PREMEDICATION
     Route: 048
     Dates: start: 20100615, end: 20100615
  6. TYLENOL [Concomitant]
     Active Substance: ACETAMINOPHEN
  7. ACETAMINOPHEN. [Concomitant]
     Active Substance: ACETAMINOPHEN
     Route: 048
     Dates: start: 20100630, end: 20100630
  8. RITUXAN [Suspect]
     Active Substance: RITUXIMAB
     Route: 042
  9. CELEBREX [Concomitant]
     Active Substance: CELECOXIB
  10. CARBOCAL D [Concomitant]
     Active Substance: CALCIUM\VITAMIN D
     Dosage: DRUG NAME ^CARBOCAL-D 400^
     Route: 065
  11. RITUXAN [Suspect]
     Active Substance: RITUXIMAB
     Route: 042
  12. HYDRA-ZIDE [Concomitant]
     Dosage: DRUG NAME ^NOVA HYDRAZIDE^
     Route: 065
  13. PLAQUENIL [Concomitant]
     Active Substance: HYDROXYCHLOROQUINE SULFATE
  14. VESICARE [Concomitant]
     Active Substance: SOLIFENACIN SUCCINATE
  15. NEXIUM [Concomitant]
     Active Substance: ESOMEPRAZOLE MAGNESIUM
  16. GLUCOPHAGE [Concomitant]
     Active Substance: METFORMIN HYDROCHLORIDE
  17. FOSAMAX [Concomitant]
     Active Substance: ALENDRONATE SODIUM
  18. PREDNISONE. [Concomitant]
     Active Substance: PREDNISONE
  19. DIPHENHYDRAMINE HCL [Concomitant]
     Active Substance: DIPHENHYDRAMINE HYDROCHLORIDE
     Route: 048
     Dates: start: 20100615
  20. EUGLUCON [Concomitant]
     Active Substance: GLYBURIDE

REACTIONS (33)
  - Nausea [Recovering/Resolving]
  - Erythema nodosum [Unknown]
  - Herpes zoster [Unknown]
  - Blood pressure increased [Unknown]
  - Back disorder [Unknown]
  - Herpes zoster [Recovered/Resolved]
  - Clostridium difficile infection [Recovered/Resolved]
  - Rheumatoid arthritis [Unknown]
  - Pharyngeal oedema [Not Recovered/Not Resolved]
  - Fatigue [Not Recovered/Not Resolved]
  - Asthenia [Unknown]
  - Gastrooesophageal reflux disease [Unknown]
  - Body temperature decreased [Unknown]
  - Blood urine present [Not Recovered/Not Resolved]
  - Oxygen saturation decreased [Unknown]
  - Vasculitis [Not Recovered/Not Resolved]
  - Asthma [Not Recovered/Not Resolved]
  - Urinary tract infection [Not Recovered/Not Resolved]
  - Dyspnoea [Not Recovered/Not Resolved]
  - Synovitis [Recovered/Resolved]
  - Oral fungal infection [Recovering/Resolving]
  - Arthritis [Recovered/Resolved]
  - Vomiting [Recovering/Resolving]
  - Pain in extremity [Unknown]
  - Renal disorder [Not Recovered/Not Resolved]
  - Bacterial test positive [Unknown]
  - Cough [Unknown]
  - Blood pressure fluctuation [Unknown]
  - Infection [Unknown]
  - Pyelonephritis [Recovered/Resolved]
  - Diarrhoea [Not Recovered/Not Resolved]
  - Dehydration [Recovering/Resolving]
  - Infusion related reaction [Unknown]

NARRATIVE: CASE EVENT DATE: 20100615
